FAERS Safety Report 13223735 (Version 1)
Quarter: 2017Q1

REPORT INFORMATION
  Report Type: Other
  Country: US (occurrence: US)
  Receive Date: 20170212
  Receipt Date: 20170212
  Transmission Date: 20170428
  Serious: No
  Sender: FDA-Public Use
  Company Number: US-ACORDA-ACO_127164_2016

PATIENT
  Sex: Female

DRUGS (3)
  1. AMPYRA [Suspect]
     Active Substance: DALFAMPRIDINE
     Indication: MULTIPLE SCLEROSIS
     Dosage: 10 MG, BID
     Route: 048
     Dates: start: 201504
  2. ALEVE [Suspect]
     Active Substance: NAPROXEN SODIUM
     Indication: PAIN
     Route: 065
  3. PLEGRIDY [Suspect]
     Active Substance: PEGINTERFERON BETA-1A
     Indication: MULTIPLE SCLEROSIS
     Dosage: UNK
     Route: 051

REACTIONS (11)
  - Drug level increased [Recovered/Resolved]
  - Malaise [Unknown]
  - Asthenia [Unknown]
  - Nightmare [Unknown]
  - Pain [Unknown]
  - Chills [Unknown]
  - Adverse drug reaction [Recovered/Resolved]
  - Fatigue [Unknown]
  - Nausea [Unknown]
  - Injection site erythema [Unknown]
  - Headache [Unknown]
